FAERS Safety Report 13698915 (Version 2)
Quarter: 2017Q3

REPORT INFORMATION
  Report Type: Spontaneous
  Country: FR (occurrence: FR)
  Receive Date: 20170628
  Receipt Date: 20170731
  Transmission Date: 20171127
  Serious: Yes (Other)
  Sender: FDA-Public Use
  Company Number: FR-TEVA-781618ROM

PATIENT
  Age: 16 Year
  Sex: Male

DRUGS (2)
  1. STALORAL [Concomitant]
     Active Substance: ALLERGENIC EXTRACTS
     Indication: HYPERSENSITIVITY
     Dosage: 4 DOSAGE FORMS DAILY; FORM: SUBLINGUAL SOLUTION OF ALLERGEN EXTRACTS FOR ALLERGEN IMMUNOTHERAPY
     Route: 060
     Dates: start: 201701, end: 201701
  2. QVAR [Suspect]
     Active Substance: BECLOMETHASONE DIPROPIONATE
     Indication: ASTHMA
     Dosage: 2 DOSAGE FORMS DAILY;
     Route: 055
     Dates: start: 201602, end: 201703

REACTIONS (2)
  - Weight decreased [Recovering/Resolving]
  - Depression [Recovering/Resolving]

NARRATIVE: CASE EVENT DATE: 201701
